FAERS Safety Report 9166235 (Version 5)
Quarter: 2014Q1

REPORT INFORMATION
  Report Type: Spontaneous
  Country: US (occurrence: US)
  Receive Date: 20130315
  Receipt Date: 20140124
  Transmission Date: 20141002
  Serious: Yes (Hospitalization, Other)
  Sender: FDA-Public Use
  Company Number: US-009507513-1303USA006783

PATIENT
  Sex: Female

DRUGS (5)
  1. FOSAMAX [Suspect]
     Indication: OSTEOPOROSIS
     Dosage: 70 MG, QW
     Route: 048
     Dates: start: 200101
  2. FOSAMAX PLUS D [Suspect]
     Indication: OSTEOPOROSIS
     Dosage: 70 MG, QW
     Route: 048
     Dates: start: 200712, end: 200802
  3. ALENDRONATE SODIUM [Suspect]
     Indication: OSTEOPOROSIS
     Dosage: 70 MG, QW
     Route: 048
     Dates: start: 200802, end: 201205
  4. ACTONEL [Concomitant]
     Indication: OSTEOPOROSIS
     Dosage: 35 MG, QW
     Route: 048
     Dates: start: 200405, end: 200712
  5. ACTONEL [Concomitant]
     Indication: OSTEOPENIA

REACTIONS (24)
  - Femur fracture [Unknown]
  - Intramedullary rod insertion [Unknown]
  - Bone trimming [Unknown]
  - Muscle strain [Unknown]
  - Muscle injury [Unknown]
  - Foot fracture [Unknown]
  - Impaired healing [Unknown]
  - Endodontic procedure [Unknown]
  - Apicectomy [Unknown]
  - Dental implantation [Unknown]
  - Hypertension [Unknown]
  - Anxiety [Unknown]
  - Depression [Unknown]
  - Hypercholesterolaemia [Unknown]
  - Arthritis [Unknown]
  - Vitamin D deficiency [Unknown]
  - Calcium deficiency [Unknown]
  - Osteoarthritis [Unknown]
  - Osteopenia [Unknown]
  - Sinusitis [Unknown]
  - Urinary tract infection [Unknown]
  - Tonsillectomy [Unknown]
  - Musculoskeletal pain [Unknown]
  - Gastrooesophageal reflux disease [Unknown]
